FAERS Safety Report 20374158 (Version 1)
Quarter: 2022Q1

REPORT INFORMATION
  Report Type: Spontaneous
  Country: US (occurrence: None)
  Receive Date: 20220125
  Receipt Date: 20220125
  Transmission Date: 20220423
  Serious: Yes (Death)
  Sender: FDA-Public Use
  Company Number: None

PATIENT
  Age: 70 Year
  Sex: Female
  Weight: 64 kg

DRUGS (2)
  1. GEMCITABINE HYDROCHLORIDE [Suspect]
     Active Substance: GEMCITABINE HYDROCHLORIDE
     Dates: end: 20210713
  2. PACLITAXEL [Suspect]
     Active Substance: PACLITAXEL
     Dates: end: 20210713

REACTIONS (1)
  - Hospice care [None]

NARRATIVE: CASE EVENT DATE: 20210811
